FAERS Safety Report 9250992 (Version 3)
Quarter: 2013Q3

REPORT INFORMATION
  Report Type: Spontaneous
  Country: AR (occurrence: AR)
  Receive Date: 20130424
  Receipt Date: 20130708
  Transmission Date: 20140515
  Serious: Yes (Other)
  Sender: FDA-Public Use
  Company Number: PHHY2013AR039856

PATIENT
  Sex: Female
  Weight: 2.38 kg

DRUGS (1)
  1. TRILEPTAL [Suspect]
     Dosage: UNK UKN, UNK
     Route: 064

REACTIONS (2)
  - Low birth weight baby [Recovered/Resolved]
  - Bronchiolitis [Recovering/Resolving]
